FAERS Safety Report 5312198-1 (Version None)
Quarter: 2007Q2

REPORT INFORMATION
  Report Type: 
  Country: None (occurrence: None)
  Receive Date: 20070430
  Receipt Date: 20060728
  Transmission Date: 20071010
  Serious: No
  Sender: FDA-Public Use
  Company Number: 2006UW15274

PATIENT
  Age: 48 Year
  Sex: Male
  Weight: 86.2 kg

DRUGS (2)
  1. NEXIUM [Suspect]
     Indication: GASTRIC DISORDER
     Route: 048
     Dates: start: 20060724
  2. IBUPROFEN [Concomitant]

REACTIONS (3)
  - EYE OEDEMA [None]
  - EYE PRURITUS [None]
  - OCULAR HYPERAEMIA [None]
